FAERS Safety Report 15585052 (Version 26)
Quarter: 2023Q1

REPORT INFORMATION
  Report Type: Report from Study
  Country: DE (occurrence: DE)
  Receive Date: 20181102
  Receipt Date: 20230331
  Transmission Date: 20230418
  Serious: Yes (Hospitalization, Other)
  Sender: FDA-Public Use
  Company Number: DE-SHIRE-DE201838632

PATIENT
  Age: 58 Year
  Sex: Female
  Weight: 79 kg

DRUGS (51)
  1. PARATHYROID HORMONE [Suspect]
     Active Substance: PARATHYROID HORMONE
     Indication: Hypoparathyroidism
     Dosage: 100 MICROGRAM, QD
     Route: 058
     Dates: start: 20171026
  2. PARATHYROID HORMONE [Suspect]
     Active Substance: PARATHYROID HORMONE
     Indication: Hypoparathyroidism
     Dosage: 100 MICROGRAM, QD
     Route: 058
     Dates: start: 20171026
  3. PARATHYROID HORMONE [Suspect]
     Active Substance: PARATHYROID HORMONE
     Indication: Hypoparathyroidism
     Dosage: 100 MICROGRAM, QD
     Route: 058
     Dates: start: 20171026
  4. PARATHYROID HORMONE [Suspect]
     Active Substance: PARATHYROID HORMONE
     Dosage: 50 MICROGRAM, QD
     Route: 058
     Dates: start: 20180916
  5. PARATHYROID HORMONE [Suspect]
     Active Substance: PARATHYROID HORMONE
     Dosage: 50 MICROGRAM, QD
     Route: 058
     Dates: start: 20180916
  6. PARATHYROID HORMONE [Suspect]
     Active Substance: PARATHYROID HORMONE
     Dosage: 50 MICROGRAM, QD
     Route: 058
     Dates: start: 20180916
  7. PARATHYROID HORMONE [Suspect]
     Active Substance: PARATHYROID HORMONE
     Dosage: 75 MICROGRAM, QD
     Route: 058
     Dates: start: 20180916
  8. PARATHYROID HORMONE [Suspect]
     Active Substance: PARATHYROID HORMONE
     Dosage: 75 MICROGRAM, QD
     Route: 058
     Dates: start: 20180916
  9. PARATHYROID HORMONE [Suspect]
     Active Substance: PARATHYROID HORMONE
     Dosage: 75 MICROGRAM, QD
     Route: 058
     Dates: start: 20180916
  10. PARATHYROID HORMONE [Suspect]
     Active Substance: PARATHYROID HORMONE
     Dosage: 75 MICROGRAM, QD
     Route: 058
     Dates: start: 20180916, end: 20200209
  11. PARATHYROID HORMONE [Suspect]
     Active Substance: PARATHYROID HORMONE
     Dosage: 75 MICROGRAM, QD
     Route: 058
     Dates: start: 20180916, end: 20200209
  12. PARATHYROID HORMONE [Suspect]
     Active Substance: PARATHYROID HORMONE
     Dosage: 75 MICROGRAM, QD
     Route: 058
     Dates: start: 20180916, end: 20200209
  13. PARATHYROID HORMONE [Suspect]
     Active Substance: PARATHYROID HORMONE
     Dosage: 75 MICROGRAM, QD
     Route: 058
     Dates: start: 20180916
  14. PARATHYROID HORMONE [Suspect]
     Active Substance: PARATHYROID HORMONE
     Dosage: 75 MICROGRAM, QD
     Route: 058
     Dates: start: 20180916
  15. PARATHYROID HORMONE [Suspect]
     Active Substance: PARATHYROID HORMONE
     Dosage: 75 MICROGRAM, QD
     Route: 058
     Dates: start: 20180916
  16. PARATHYROID HORMONE [Suspect]
     Active Substance: PARATHYROID HORMONE
     Dosage: 75 MICROGRAM, QD
     Route: 058
     Dates: start: 20180916, end: 20210614
  17. PARATHYROID HORMONE [Suspect]
     Active Substance: PARATHYROID HORMONE
     Dosage: 75 MICROGRAM, QD
     Route: 058
     Dates: start: 20180916, end: 20210614
  18. PARATHYROID HORMONE [Suspect]
     Active Substance: PARATHYROID HORMONE
     Dosage: 75 MICROGRAM, QD
     Route: 058
     Dates: start: 20180916, end: 20210614
  19. PARATHYROID HORMONE [Suspect]
     Active Substance: PARATHYROID HORMONE
     Dosage: 100 MICROGRAM, QD
     Route: 058
     Dates: start: 20180916
  20. PARATHYROID HORMONE [Suspect]
     Active Substance: PARATHYROID HORMONE
     Dosage: 100 MICROGRAM, QD
     Route: 058
     Dates: start: 20180916
  21. PARATHYROID HORMONE [Suspect]
     Active Substance: PARATHYROID HORMONE
     Dosage: 100 MICROGRAM, QD
     Route: 058
     Dates: start: 20180916
  22. PARATHYROID HORMONE [Suspect]
     Active Substance: PARATHYROID HORMONE
     Dosage: 100 MICROGRAM, QD
     Route: 058
     Dates: start: 20180916
  23. PARATHYROID HORMONE [Suspect]
     Active Substance: PARATHYROID HORMONE
     Dosage: 100 MICROGRAM, QD
     Route: 058
     Dates: start: 20180916
  24. PARATHYROID HORMONE [Suspect]
     Active Substance: PARATHYROID HORMONE
     Dosage: 100 MICROGRAM, QD
     Route: 058
     Dates: start: 20180916
  25. PARATHYROID HORMONE [Suspect]
     Active Substance: PARATHYROID HORMONE
     Dosage: 75 MICROGRAM, QD
     Route: 058
     Dates: start: 20200210
  26. PARATHYROID HORMONE [Suspect]
     Active Substance: PARATHYROID HORMONE
     Dosage: 75 MICROGRAM, QD
     Route: 058
     Dates: start: 20200210
  27. PARATHYROID HORMONE [Suspect]
     Active Substance: PARATHYROID HORMONE
     Dosage: 75 MICROGRAM, QD
     Route: 058
     Dates: start: 20200210
  28. PARATHYROID HORMONE [Suspect]
     Active Substance: PARATHYROID HORMONE
     Dosage: 50 MICROGRAM, QD
     Route: 058
     Dates: start: 20171026
  29. PARATHYROID HORMONE [Suspect]
     Active Substance: PARATHYROID HORMONE
     Dosage: 50 MICROGRAM, QD
     Route: 058
     Dates: start: 20171026
  30. PARATHYROID HORMONE [Suspect]
     Active Substance: PARATHYROID HORMONE
     Dosage: 50 MICROGRAM, QD
     Route: 058
     Dates: start: 20171026
  31. PARATHYROID HORMONE [Suspect]
     Active Substance: PARATHYROID HORMONE
     Dosage: 50 MICROGRAM, QD
     Route: 058
     Dates: start: 20171026
  32. PARATHYROID HORMONE [Suspect]
     Active Substance: PARATHYROID HORMONE
     Dosage: 50 MICROGRAM, QD
     Route: 058
     Dates: start: 20171026
  33. PARATHYROID HORMONE [Suspect]
     Active Substance: PARATHYROID HORMONE
     Dosage: 50 MICROGRAM, QD
     Route: 058
     Dates: start: 20171026
  34. LEVOTHYROXINE SODIUM [Concomitant]
     Active Substance: LEVOTHYROXINE SODIUM
     Indication: Thyroidectomy
     Dosage: 100 MICROGRAM, QD
     Route: 048
  35. CALCITRIOL [Concomitant]
     Active Substance: CALCITRIOL
     Indication: Hypoparathyroidism
     Dosage: 20000 INTERNATIONAL UNIT, QD
     Route: 048
  36. CALCITRIOL [Concomitant]
     Active Substance: CALCITRIOL
     Dosage: 20000 INTERNATIONAL UNIT, 1/WEEK
     Route: 048
  37. MAGNESIUM ASPARTATE HYDROCHLORIDE [Concomitant]
     Active Substance: MAGNESIUM ASPARTATE HYDROCHLORIDE
     Indication: Muscle spasms
     Dosage: UNK UNK, TID
     Route: 048
  38. MAGNESIUM ASPARTATE HYDROCHLORIDE [Concomitant]
     Active Substance: MAGNESIUM ASPARTATE HYDROCHLORIDE
     Indication: Magnesium deficiency
  39. FRUBIASE CALCIUM FORTE [Concomitant]
     Indication: Hypoparathyroidism
  40. HYGROTON [Concomitant]
     Active Substance: CHLORTHALIDONE
     Indication: Arrhythmia
  41. ASPIRIN [Concomitant]
     Active Substance: ASPIRIN
     Indication: Transient ischaemic attack
     Dosage: 100 MILLIGRAM, QD
     Route: 048
  42. NEXIUM [Concomitant]
     Active Substance: ESOMEPRAZOLE MAGNESIUM
     Indication: Gastrointestinal disorder prophylaxis
     Dosage: 40 MILLIGRAM, QD
     Route: 048
  43. HYDROCHLOROTHIAZIDE [Concomitant]
     Active Substance: HYDROCHLOROTHIAZIDE
     Indication: Product used for unknown indication
     Dosage: 12.5 MILLIGRAM, QD
     Route: 048
  44. MORPHINE [Concomitant]
     Active Substance: MORPHINE
     Indication: Back pain
     Dosage: UNK
     Route: 050
     Dates: start: 202209
  45. CALCITRAT [Concomitant]
     Indication: Hypoparathyroidism
     Dosage: 950 MILLIGRAM, QD
     Route: 048
  46. CALCITRIOL [Concomitant]
     Active Substance: CALCITRIOL
     Indication: Hypoparathyroidism
  47. CALCITRIOL NEFRO [Concomitant]
     Indication: Hypoparathyroidism
     Dosage: 0.25 MICROGRAM, QD
     Route: 048
  48. DIETARY SUPPLEMENT [Concomitant]
     Active Substance: DIETARY SUPPLEMENT
     Indication: Tachycardia
     Dosage: UNK, BID
     Route: 048
  49. DIETARY SUPPLEMENT [Concomitant]
     Active Substance: DIETARY SUPPLEMENT
     Indication: Atrial fibrillation
  50. HYDROCHLOROTHIAZIDE [Concomitant]
     Active Substance: HYDROCHLOROTHIAZIDE
     Indication: Product used for unknown indication
     Dosage: 12.5 MILLIGRAM, QD
     Route: 048
  51. CHOLECALCIFEROL [Concomitant]
     Active Substance: CHOLECALCIFEROL
     Indication: Hypoparathyroidism
     Dosage: 20000 INTERNATIONAL UNIT, 1/WEEK
     Route: 048

REACTIONS (47)
  - Foot deformity [Recovered/Resolved]
  - Intervertebral disc displacement [Recovered/Resolved]
  - Postoperative wound complication [Recovered/Resolved]
  - Inflammation [Recovered/Resolved]
  - Impaired healing [Recovered/Resolved]
  - Abscess [Recovered/Resolved]
  - Intestinal perforation [Recovered/Resolved]
  - Hypoglycaemia [Recovered/Resolved]
  - Tachycardia [Recovered/Resolved]
  - Gastritis [Recovered/Resolved]
  - Diaphragmatic rupture [Recovered/Resolved]
  - Asthenia [Recovered/Resolved]
  - Hypocalcaemia [Recovered/Resolved]
  - Abdominal pain upper [Not Recovered/Not Resolved]
  - Nephrolithiasis [Recovered/Resolved]
  - Vomiting [Recovered/Resolved]
  - Arthralgia [Recovered/Resolved]
  - Benign gastric neoplasm [Recovered/Resolved]
  - Back pain [Not Recovered/Not Resolved]
  - Renal neoplasm [Not Recovered/Not Resolved]
  - Pyelonephritis [Not Recovered/Not Resolved]
  - Atrial fibrillation [Recovered/Resolved]
  - Arrhythmia [Recovered/Resolved]
  - Bradycardia [Not Recovered/Not Resolved]
  - Hypokalaemia [Not Recovered/Not Resolved]
  - Hyperhidrosis [Not Recovered/Not Resolved]
  - Constipation [Recovered/Resolved]
  - Injection site pain [Not Recovered/Not Resolved]
  - Blood calcium increased [Recovered/Resolved]
  - Blood calcium abnormal [Recovered/Resolved]
  - Hypercalcaemia [Recovered/Resolved]
  - Paraesthesia [Recovered/Resolved]
  - Hypoaesthesia [Recovered/Resolved]
  - Drug ineffective [Recovered/Resolved]
  - Iron deficiency [Not Recovered/Not Resolved]
  - Blood pressure increased [Recovered/Resolved]
  - Osteitis [Not Recovered/Not Resolved]
  - Dental implantation [Recovered/Resolved]
  - Haemoglobin decreased [Recovered/Resolved]
  - Pain in jaw [Not Recovered/Not Resolved]
  - Pollakiuria [Recovered/Resolved]
  - Pain in extremity [Not Recovered/Not Resolved]
  - Urine calcium increased [Not Recovered/Not Resolved]
  - Weight decreased [Not Recovered/Not Resolved]
  - Off label use [Not Recovered/Not Resolved]
  - Intentional product use issue [Not Recovered/Not Resolved]
  - Device defective [Unknown]

NARRATIVE: CASE EVENT DATE: 20181109
